FAERS Safety Report 8715290 (Version 6)
Quarter: 2012Q4

REPORT INFORMATION
  Report Type: Spontaneous
  Country: JP (occurrence: None)
  Receive Date: 20120725
  Receipt Date: 20120906
  Transmission Date: 20130627
  Serious: Yes (Hospitalization, Other)
  Sender: FDA-Public Use
  Company Number: ADR-2012-01332

PATIENT
  Age: 7 Year
  Sex: Male

DRUGS (1)
  1. BACLOFEN [Suspect]
     Indication: CEREBRAL PALSY

REACTIONS (3)
  - MENINGITIS BACTERIAL [None]
  - DRUG INEFFECTIVE [None]
  - URINARY TRACT INFECTION [None]
